FAERS Safety Report 22203512 (Version 1)
Quarter: 2023Q2

REPORT INFORMATION
  Report Type: Spontaneous
  Country: US (occurrence: US)
  Receive Date: 20230412
  Receipt Date: 20230412
  Transmission Date: 20230722
  Serious: No
  Sender: FDA-Public Use
  Company Number: US-JNJFOC-20191036335

PATIENT
  Sex: Female
  Weight: 56.296 kg

DRUGS (1)
  1. IMODIUM A-D [Suspect]
     Active Substance: LOPERAMIDE HYDROCHLORIDE
     Indication: Gastric disorder
     Dosage: 1 TSP DAILY
     Route: 048

REACTIONS (2)
  - Product use in unapproved indication [Unknown]
  - Off label use [Unknown]
